FAERS Safety Report 19330285 (Version 2)
Quarter: 2021Q2

REPORT INFORMATION
  Report Type: Spontaneous
  Country: HU (occurrence: HU)
  Receive Date: 20210528
  Receipt Date: 20210601
  Transmission Date: 20210717
  Serious: Yes (Other)
  Sender: FDA-Public Use
  Company Number: NVSC2021HU117899

PATIENT
  Age: 54 Year
  Sex: Male

DRUGS (15)
  1. PRAZOSIN. [Suspect]
     Active Substance: PRAZOSIN
     Indication: SUPINE HYPERTENSION
     Dosage: 4 MG, QD (2 MG, 2X PER DAY)
     Route: 065
  2. FUROSEMIDE. [Suspect]
     Active Substance: FUROSEMIDE
     Indication: SUPINE HYPERTENSION
     Dosage: 40 MG, QD (40 MG, 1X PER DAY, IN THE MORNING)
     Route: 065
  3. BISOPROLOL FUMARATE. [Suspect]
     Active Substance: BISOPROLOL FUMARATE
     Indication: SUPINE HYPERTENSION
     Dosage: 5 MG, QD (2.5 MG, 2X PER DAY)
     Route: 065
  4. TELMISARTAN AND HYDROCHLOROTHIAZIDE [Suspect]
     Active Substance: HYDROCHLOROTHIAZIDE\TELMISARTAN
     Indication: SUPINE HYPERTENSION
     Dosage: 26.25 MG, BID (2X20/6.25MG)
     Route: 065
  5. TACROLIMUS. [Suspect]
     Active Substance: TACROLIMUS
     Indication: RENAL TRANSPLANT
     Dosage: 2 MG, 1X PER DAY, IN THE MORNING
     Route: 065
  6. BENFOTIAMINE;PYRIDOXINE [Suspect]
     Active Substance: BENFOTIAMINE\PYRIDOXINE
     Indication: BACK PAIN
     Dosage: 400 MG (200+200MG)
     Route: 065
  7. FAMOTIDINE. [Suspect]
     Active Substance: FAMOTIDINE
     Indication: PRODUCT USED FOR UNKNOWN INDICATION
     Dosage: 40 MG, QD (40 MG, 1X PER DAY, IN THE EVENING)
     Route: 065
  8. MYCOPHENOLIC ACID. [Suspect]
     Active Substance: MYCOPHENOLIC ACID
     Indication: RENAL TRANSPLANT
     Dosage: 1000 MG, QD (500 MG, 2X PER DAY)
     Route: 065
  9. ALLOPURINOL. [Suspect]
     Active Substance: ALLOPURINOL
     Indication: PRODUCT USED FOR UNKNOWN INDICATION
     Dosage: 300 MG, QD (100 MG, 3X PER DAY) (100MG PER Q8H)
     Route: 065
  10. URAPIDIL [Suspect]
     Active Substance: URAPIDIL
     Indication: SUPINE HYPERTENSION
     Dosage: 30 MG, 1X PER DAY, IN THE MORNING
     Route: 065
  11. ROSUVASTATIN CALCIUM. [Suspect]
     Active Substance: ROSUVASTATIN CALCIUM
     Indication: PRODUCT USED FOR UNKNOWN INDICATION
     Dosage: 5 MG, QD (5 MG IN THE EVENING)
     Route: 065
  12. HYDROCHLOROTHIAZIDE,VALSARTAN [Suspect]
     Active Substance: HYDROCHLOROTHIAZIDE\VALSARTAN
     Indication: SUPINE HYPERTENSION
     Dosage: 92.5 MG (80MG/12.5 MG IN THE EVENING)
     Route: 065
  13. DOXAZOSIN MESILATE [Suspect]
     Active Substance: DOXAZOSIN MESYLATE
     Indication: SUPINE HYPERTENSION
     Dosage: 4 MG, QD (2 MG, 2X PER DAY)
     Route: 065
  14. TELMISARTAN AND HYDROCHLOROTHIAZIDE [Suspect]
     Active Substance: HYDROCHLOROTHIAZIDE\TELMISARTAN
     Dosage: 1 DF, QD (40 MG/12.5 MG, 1X PER DAY, IN THE MORNING)
     Route: 065
  15. PREDNISOLONE. [Suspect]
     Active Substance: PREDNISOLONE
     Indication: RENAL TRANSPLANT
     Dosage: 5 MG, QD (5 MG, 1X PER DAY, IN THE MORNING)
     Route: 065

REACTIONS (6)
  - Drug ineffective [Unknown]
  - Cardiac autonomic neuropathy [Unknown]
  - Hypertonia [Unknown]
  - Non-dipping [Unknown]
  - Supine hypertension [Unknown]
  - Back pain [Unknown]

NARRATIVE: CASE EVENT DATE: 20171020
